FAERS Safety Report 10354869 (Version 1)
Quarter: 2014Q3

REPORT INFORMATION
  Report Type: Spontaneous
  Country: US (occurrence: None)
  Receive Date: 20140729
  Receipt Date: 20140729
  Transmission Date: 20150326
  Serious: Yes (Death)
  Sender: FDA-Public Use
  Company Number: USW201407-000164

PATIENT
  Sex: Male
  Weight: 90.71 kg

DRUGS (4)
  1. BETAPACE [Concomitant]
     Active Substance: SOTALOL HYDROCHLORIDE
  2. APOKYN [Suspect]
     Active Substance: APOMORPHINE HYDROCHLORIDE
     Indication: PARKINSON^S DISEASE
  3. SINEMET (CARBIDOPA, LEVODOPA) (CARBIDOPA, LEVODOPA) [Concomitant]
  4. TYLENLOL [Concomitant]

REACTIONS (6)
  - Oesophageal disorder [None]
  - Parkinson^s disease [None]
  - Dysphagia [None]
  - Pneumonia [None]
  - Decreased appetite [None]
  - Eating disorder [None]
